FAERS Safety Report 4733949-0 (Version None)
Quarter: 2005Q3

REPORT INFORMATION
  Report Type: 
  Country: None (occurrence: None)
  Receive Date: 20050721
  Receipt Date: 20050502
  Transmission Date: 20060218
  Serious: No
  Sender: FDA-Public Use
  Company Number: 2005SP000483

PATIENT
  Age: 45 Year
  Sex: Female
  Weight: 71.2147 kg

DRUGS (1)
  1. LUNESTA [Suspect]
     Dates: start: 20050401

REACTIONS (1)
  - DYSGEUSIA [None]
